FAERS Safety Report 14157621 (Version 3)
Quarter: 2021Q4

REPORT INFORMATION
  Report Type: Spontaneous
  Country: JP (occurrence: JP)
  Receive Date: 20171103
  Receipt Date: 20211108
  Transmission Date: 20220303
  Serious: Yes (Death, Hospitalization)
  Sender: FDA-Public Use
  Company Number: JP-PFIZER INC-2017471937

PATIENT
  Age: 55 Year
  Sex: Male

DRUGS (1)
  1. METHOTREXATE SODIUM [Suspect]
     Active Substance: METHOTREXATE SODIUM
     Indication: Psoriatic arthropathy
     Dosage: 5-10 MG (FOR 16 YEARS)

REACTIONS (4)
  - Multiple organ dysfunction syndrome [Fatal]
  - Skin ulcer [Unknown]
  - Pancytopenia [Not Recovered/Not Resolved]
  - Mouth ulceration [Unknown]
